FAERS Safety Report 4925098-3 (Version None)
Quarter: 2006Q1

REPORT INFORMATION
  Report Type: 
  Country: None (occurrence: None)
  Receive Date: 20060228
  Receipt Date: 20051207
  Transmission Date: 20060701
  Serious: Yes (Hospitalization)
  Sender: FDA-Public Use
  Company Number: US-GLAXOSMITHKLINE-A0584998A

PATIENT
  Age: 38 Year
  Sex: Male

DRUGS (2)
  1. EPZICOM [Suspect]
     Indication: HIV INFECTION
     Dosage: 1TAB PER DAY
     Route: 048
     Dates: start: 20050501, end: 20051130
  2. SUSTIVA [Concomitant]

REACTIONS (7)
  - ABDOMINAL PAIN [None]
  - FATIGUE [None]
  - FLUSHING [None]
  - HEPATIC ENZYME INCREASED [None]
  - HYPERSENSITIVITY [None]
  - LACTIC ACIDOSIS [None]
  - RASH [None]
